FAERS Safety Report 6357977-7 (Version None)
Quarter: 2009Q3

REPORT INFORMATION
  Report Type: 
  Country: None (occurrence: None)
  Receive Date: 20090916
  Receipt Date: 20090908
  Transmission Date: 20100115
  Serious: Yes (Hospitalization)
  Sender: FDA-Public Use
  Company Number: US-GILEAD-2009-0024148

PATIENT
  Sex: Female
  Weight: 88.984 kg

DRUGS (12)
  1. LETAIRIS [Suspect]
     Indication: PULMONARY ARTERIAL HYPERTENSION
     Route: 048
     Dates: start: 20090217
  2. COUMADIN [Concomitant]
  3. AZITHROMYCIN [Concomitant]
  4. FLOLAN [Concomitant]
  5. ATRIPLA [Concomitant]
  6. NORVIR [Concomitant]
  7. PREVISTA [Concomitant]
  8. DAPSONE [Concomitant]
  9. LASIX [Concomitant]
  10. CALCIUM + D [Concomitant]
  11. TYLENOL (CAPLET) [Concomitant]
  12. SPECTRAVITE [Concomitant]

REACTIONS (2)
  - PNEUMONIA [None]
  - THROMBOSIS [None]
